FAERS Safety Report 6837420-1 (Version None)
Quarter: 2010Q3

REPORT INFORMATION
  Report Type: 
  Country: None (occurrence: None)
  Receive Date: 20100707
  Receipt Date: 20100624
  Transmission Date: 20110219
  Serious: Yes (Hospitalization)
  Sender: FDA-Public Use
  Company Number: WAES 1005USA00698

PATIENT
  Age: 48 Year
  Sex: Female

DRUGS (8)
  1. TAB SITSGLIPTIN PHOSPHATE [Suspect]
     Indication: TYPE 2 DIABETES MELLITUS
     Dosage: 50 MG/DAILY/PO; 100 MG/DAILY/PO
     Route: 048
     Dates: start: 20100303, end: 20100427
  2. TAB SITSGLIPTIN PHOSPHATE [Suspect]
     Indication: TYPE 2 DIABETES MELLITUS
     Dosage: 50 MG/DAILY/PO; 100 MG/DAILY/PO
     Route: 048
     Dates: start: 20100428, end: 20100506
  3. PLACEBO (UNSPECIFIED) [Suspect]
     Indication: TYPE 2 DIABETES MELLITUS
     Dosage: 1 TAB/DAILY/PO
     Route: 048
     Dates: start: 20091111, end: 20100302
  4. ATHEROPAN [Concomitant]
  5. HUMALOG [Concomitant]
  6. MUCODYNE [Concomitant]
  7. NEOMALLERMIN TR [Concomitant]
  8. REMICUT [Concomitant]

REACTIONS (4)
  - BLOOD GLUCOSE INCREASED [None]
  - CAROTID ARTERY OCCLUSION [None]
  - CEREBRAL INFARCTION [None]
  - DYSLIPIDAEMIA [None]
